FAERS Safety Report 13340765 (Version 1)
Quarter: 2017Q1

REPORT INFORMATION
  Report Type: Spontaneous
  Country: CN (occurrence: CN)
  Receive Date: 20170316
  Receipt Date: 20170316
  Transmission Date: 20170428
  Serious: Yes (Death, Other)
  Sender: FDA-Public Use
  Company Number: CN-ACCORD-048972

PATIENT
  Age: 49 Year
  Sex: Female

DRUGS (4)
  1. IRINOTECAN JIANGSU HENGRUI MEDICINE [Suspect]
     Active Substance: IRINOTECAN
     Indication: ADENOCARCINOMA OF COLON
     Dosage: RECEIVED 180 MG/M2, DAY 1 (14 DAY CYCLE) FROM NOV-2012
     Dates: start: 2008, end: 2008
  2. ERBITUX [Suspect]
     Active Substance: CETUXIMAB
     Indication: ADENOCARCINOMA OF COLON
     Dosage: ALSO RECEIVED 250 MG/M2 WEEKLY IN SAME DUARTION
     Dates: start: 201211
  3. FLUOROURACIL. [Suspect]
     Active Substance: FLUOROURACIL
     Indication: ADENOCARCINOMA OF COLON
     Dosage: RECEIVED 400 MG/M2, DAY 1 AND 2 (14 DAY CYCLE): BOLUS INJECTION FROM NOV-2012
     Dates: start: 2008, end: 2008
  4. FOLINIC ACID [Suspect]
     Active Substance: LEUCOVORIN
     Indication: ADENOCARCINOMA OF COLON
     Dosage: RECEIVED 200 MG/M2 DAY 1 AND 2 (14 DAY CYCLE) FROM NOV-2016
     Dates: start: 2008, end: 2008

REACTIONS (4)
  - Trichomegaly [Unknown]
  - Rash [Unknown]
  - Bone marrow failure [Unknown]
  - Chest discomfort [Unknown]

NARRATIVE: CASE EVENT DATE: 2008
